FAERS Safety Report 15766887 (Version 1)
Quarter: 2018Q4

REPORT INFORMATION
  Report Type: Spontaneous
  Country: US (occurrence: US)
  Receive Date: 20181227
  Receipt Date: 20181227
  Transmission Date: 20190205
  Serious: Yes (Other)
  Sender: FDA-Public Use
  Company Number: US-GLAXOSMITHKLINE-US2018231005

PATIENT
  Sex: Male

DRUGS (1)
  1. ADVAIR DISKUS [Suspect]
     Active Substance: FLUTICASONE PROPIONATE\SALMETEROL XINAFOATE
     Indication: ASTHMA
     Dosage: 1 PUFF(S), BID
     Route: 055
     Dates: start: 2003

REACTIONS (3)
  - Emphysema [Not Recovered/Not Resolved]
  - Disability [Not Recovered/Not Resolved]
  - Lung disorder [Unknown]

NARRATIVE: CASE EVENT DATE: 2012
